FAERS Safety Report 5984315-1 (Version None)
Quarter: 2008Q4

REPORT INFORMATION
  Report Type: 
  Country: None (occurrence: None)
  Receive Date: 20081208
  Receipt Date: 20080312
  Transmission Date: 20090506
  Serious: No
  Sender: FDA-Public Use
  Company Number: US-AMGEN-KDL264366

PATIENT
  Sex: Female

DRUGS (11)
  1. ENBREL [Suspect]
     Indication: PSORIATIC ARTHROPATHY
     Route: 058
     Dates: start: 20080123
  2. ENBREL [Suspect]
     Indication: PSORIASIS
  3. ZOCOR [Suspect]
  4. DIOVAN [Suspect]
  5. MACROBID [Suspect]
  6. FUROSEMIDE [Suspect]
  7. UNKNOWN [Suspect]
  8. PRILOSEC [Suspect]
  9. EFFEXOR [Suspect]
  10. VIVELLE [Suspect]
  11. DARVOCET-N 100 [Suspect]

REACTIONS (2)
  - INJECTION SITE PAIN [None]
  - PSORIATIC ARTHROPATHY [None]
